FAERS Safety Report 22158431 (Version 2)
Quarter: 2023Q2

REPORT INFORMATION
  Report Type: Spontaneous
  Country: GB (occurrence: GB)
  Receive Date: 20230331
  Receipt Date: 20230414
  Transmission Date: 20230722
  Serious: Yes (Hospitalization)
  Sender: FDA-Public Use
  Company Number: GB-SANOFI-01356880

PATIENT
  Age: 92 Year
  Sex: Male
  Weight: 50.8 kg

DRUGS (1)
  1. SELENIUM SULFIDE [Suspect]
     Active Substance: SELENIUM SULFIDE
     Dosage: UNK UNK, BIW
     Route: 065
     Dates: start: 202209, end: 202209

REACTIONS (9)
  - Skin exfoliation [Not Recovered/Not Resolved]
  - Application site pruritus [Not Recovered/Not Resolved]
  - Application site pain [Not Recovered/Not Resolved]
  - Application site discolouration [Not Recovered/Not Resolved]
  - Application site burn [Not Recovered/Not Resolved]
  - Application site vesicles [Not Recovered/Not Resolved]
  - Pain [Not Recovered/Not Resolved]
  - Scar [Unknown]
  - Skin burning sensation [Unknown]

NARRATIVE: CASE EVENT DATE: 20221001
